FAERS Safety Report 8893775 (Version 1)
Quarter: 2012Q4

REPORT INFORMATION
  Report Type: 
  Country: US (occurrence: US)
  Receive Date: 20121108
  Receipt Date: 20121108
  Transmission Date: 20130627
  Serious: No
  Sender: FDA-Public Use
  Company Number: US-PFIZER INC-2012274930

PATIENT
  Age: 58 Year
  Sex: Male
  Weight: 67.12 kg

DRUGS (3)
  1. VIAGRA [Suspect]
     Indication: ERECTILE DYSFUNCTION
     Dosage: 100 mg, as needed
     Route: 048
     Dates: start: 201210, end: 20121102
  2. VIAGRA [Suspect]
     Dosage: 200 mg, UNK
     Route: 048
     Dates: start: 20121102, end: 20121102
  3. HYDROCODONE [Concomitant]
     Indication: PAIN
     Dosage: UNK, 1x/day

REACTIONS (2)
  - Incorrect dose administered [Unknown]
  - Drug ineffective [Unknown]
